FAERS Safety Report 6099205-6 (Version None)
Quarter: 2009Q1

REPORT INFORMATION
  Report Type: 
  Country: None (occurrence: None)
  Receive Date: 20090225
  Receipt Date: 20090225
  Transmission Date: 20090719
  Serious: Yes (Death, Hospitalization)
  Sender: FDA-Public Use
  Company Number: None

PATIENT
  Sex: Male
  Weight: 67.586 kg

DRUGS (1)
  1. SORAFENIB 400MG DAILY [Suspect]
     Indication: METASTATIC NEOPLASM
     Dosage: 400MG DAILY P.O.
     Route: 048
     Dates: start: 20081230, end: 20090219

REACTIONS (4)
  - CARDIO-RESPIRATORY ARREST [None]
  - HAEMATEMESIS [None]
  - LOSS OF CONSCIOUSNESS [None]
  - PULMONARY HAEMORRHAGE [None]
